FAERS Safety Report 5467499-3 (Version None)
Quarter: 2007Q3

REPORT INFORMATION
  Report Type: 
  Country: None (occurrence: None)
  Receive Date: 20070925
  Receipt Date: 20070920
  Transmission Date: 20080115
  Serious: Yes (Other)
  Sender: FDA-Public Use
  Company Number: US-GENENTECH-248110

PATIENT
  Sex: Female
  Weight: 78.005 kg

DRUGS (1)
  1. RAPTIVA [Suspect]
     Indication: PSORIASIS
     Dosage: 0.8 ML, 1/WEEK
     Route: 058
     Dates: start: 20070613, end: 20070822

REACTIONS (2)
  - OVARIAN CYST [None]
  - WHITE BLOOD CELL COUNT INCREASED [None]
